FAERS Safety Report 8958137 (Version 2)
Quarter: 2013Q1

REPORT INFORMATION
  Report Type: Spontaneous
  Country: US (occurrence: US)
  Receive Date: 20121211
  Receipt Date: 20130122
  Transmission Date: 20140127
  Serious: Yes (Other)
  Sender: FDA-Public Use
  Company Number: PHHY2012US112895

PATIENT
  Sex: Female

DRUGS (6)
  1. METOPROLOL [Suspect]
     Indication: BLOOD PRESSURE
     Dosage: 50 MG, BID
     Route: 048
     Dates: start: 201104
  2. EXFORGE [Suspect]
     Indication: BLOOD PRESSURE
     Dosage: 1 DF (320MG VALS/10MG AMLO), DAILY
     Route: 048
     Dates: start: 201112
  3. PAROXETINE HCL [Concomitant]
     Dosage: UNK
  4. KLOR-CON [Concomitant]
     Dosage: UNK
  5. FISH OIL [Concomitant]
     Dosage: UNK
  6. BABY ASPIRIN [Concomitant]
     Dosage: UNK

REACTIONS (7)
  - Aortic aneurysm [Unknown]
  - Pulmonary oedema [Unknown]
  - Ejection fraction decreased [Unknown]
  - Pulmonary hypertension [Unknown]
  - Pleural effusion [Unknown]
  - Atrial flutter [Unknown]
  - Malaise [Unknown]
